FAERS Safety Report 8305850-7 (Version None)
Quarter: 2012Q1

REPORT INFORMATION
  Report Type: 
  Country: None (occurrence: None)
  Receive Date: 20120326
  Receipt Date: 20120202
  Transmission Date: 20120608
  Serious: Yes (Other)
  Sender: FDA-Public Use
  Company Number: PHEH2012US001593

PATIENT
  Age: 61 Year
  Sex: Female
  Weight: 78.6 kg

DRUGS (3)
  1. TASIGNA [Suspect]
     Indication: CHRONIC MYELOID LEUKAEMIA
     Dosage: 400 MG, BID, ORAL, 400 MG, DAILY, ORAL, 600 MG, DAILY, ORAL
     Route: 048
     Dates: start: 20090201
  2. TASIGNA [Suspect]
     Indication: CHRONIC MYELOID LEUKAEMIA
     Dosage: 400 MG, BID, ORAL, 400 MG, DAILY, ORAL, 600 MG, DAILY, ORAL
     Route: 048
     Dates: start: 20120105
  3. NORVASC [Concomitant]

REACTIONS (3)
  - THROMBOCYTOPENIA [None]
  - CHRONIC MYELOID LEUKAEMIA [None]
  - NEOPLASM MALIGNANT [None]
